FAERS Safety Report 19539457 (Version 3)
Quarter: 2021Q3

REPORT INFORMATION
  Report Type: Report from Study
  Country: AR (occurrence: AR)
  Receive Date: 20210714
  Receipt Date: 20210927
  Transmission Date: 20211014
  Serious: Yes (Other)
  Sender: FDA-Public Use
  Company Number: AR-ROCHE-2862491

PATIENT
  Age: 64 Year
  Sex: Female
  Weight: 60 kg

DRUGS (66)
  1. OCRELIZUMAB. [Suspect]
     Active Substance: OCRELIZUMAB
     Dosage: SUBSEQUENT DOSE: 17/SEP/2015 (OLE WEEK 48, 520 ML, LOT NUMBER: 1147100), 09/MAR/2016 (OLE WEEK 72, 5
     Route: 042
     Dates: start: 20150326
  2. DIPHENHYDRAMINE. [Concomitant]
     Active Substance: DIPHENHYDRAMINE
     Dosage: OLE?WEEK 144
     Dates: start: 20170714
  3. DIPHENHYDRAMINE. [Concomitant]
     Active Substance: DIPHENHYDRAMINE
     Dosage: OLE?WEEK 168
     Dates: start: 20180120
  4. PARACETAMOL [Concomitant]
     Active Substance: ACETAMINOPHEN
     Dosage: OLE?WEEK 48
     Dates: start: 20150917
  5. PARACETAMOL [Concomitant]
     Active Substance: ACETAMINOPHEN
     Dosage: OLE?WEEK 72
     Dates: start: 20160309
  6. PARACETAMOL [Concomitant]
     Active Substance: ACETAMINOPHEN
     Dosage: OLE?WEEK 216
     Dates: start: 20181214
  7. METHYLPREDNISOLONE. [Concomitant]
     Active Substance: METHYLPREDNISOLONE
     Dosage: WEEK 72
     Dates: start: 20140401, end: 20140401
  8. METHYLPREDNISOLONE. [Concomitant]
     Active Substance: METHYLPREDNISOLONE
     Dosage: OLE?WEEK 0
     Dates: start: 20141009, end: 20141009
  9. DIPHENHYDRAMINE. [Concomitant]
     Active Substance: DIPHENHYDRAMINE
     Dosage: OLE?WEEK 264
     Dates: start: 20191031
  10. PARACETAMOL [Concomitant]
     Active Substance: ACETAMINOPHEN
     Indication: PREMEDICATION
     Dosage: BASELINE (WEEK 1)
     Dates: start: 20121113
  11. PARACETAMOL [Concomitant]
     Active Substance: ACETAMINOPHEN
     Dosage: WEEK 24
     Dates: start: 20130430
  12. PARACETAMOL [Concomitant]
     Active Substance: ACETAMINOPHEN
     Dosage: OLE?WEEK 24
     Dates: start: 20150326
  13. PARACETAMOL [Concomitant]
     Active Substance: ACETAMINOPHEN
     Dosage: OLE?WEEK 120
     Dates: start: 20170127
  14. PARACETAMOL [Concomitant]
     Active Substance: ACETAMINOPHEN
     Dosage: OLE?WEEK 312
     Dates: start: 20201223
  15. METHYLPREDNISOLONE. [Concomitant]
     Active Substance: METHYLPREDNISOLONE
     Dosage: WEEK 24
     Dates: start: 20130430, end: 20130430
  16. METHYLPREDNISOLONE. [Concomitant]
     Active Substance: METHYLPREDNISOLONE
     Dosage: OLE?WEEK 192
     Dates: start: 20180704, end: 20180704
  17. PLACEBO [Suspect]
     Active Substance: UNSPECIFIED INGREDIENT
     Indication: RELAPSING-REMITTING MULTIPLE SCLEROSIS
     Dosage: SUBSEQUENT DOSE: 17/SEP/2014, 07/OCT/2014
     Route: 058
     Dates: start: 20121113, end: 20141007
  18. CLONAZEPAM. [Concomitant]
     Active Substance: CLONAZEPAM
     Indication: ANXIETY
     Dates: start: 2007
  19. DIPHENHYDRAMINE. [Concomitant]
     Active Substance: DIPHENHYDRAMINE
     Dosage: OLE?WEEK 24
     Dates: start: 20150326
  20. DIPHENHYDRAMINE. [Concomitant]
     Active Substance: DIPHENHYDRAMINE
     Dosage: OLE?WEEK 72
     Dates: start: 20160309
  21. DIPHENHYDRAMINE. [Concomitant]
     Active Substance: DIPHENHYDRAMINE
     Dosage: OLE?WEEK 192
     Dates: start: 20180704
  22. DIPHENHYDRAMINE. [Concomitant]
     Active Substance: DIPHENHYDRAMINE
     Dosage: OLE?WEEK 312
     Dates: start: 20201223
  23. PARACETAMOL [Concomitant]
     Active Substance: ACETAMINOPHEN
     Dosage: WEEK 48
     Dates: start: 20131015
  24. PARACETAMOL [Concomitant]
     Active Substance: ACETAMINOPHEN
     Dosage: WEEK 72
     Dates: start: 20140401
  25. PARACETAMOL [Concomitant]
     Active Substance: ACETAMINOPHEN
     Dosage: OLE?WEEK 2
     Dates: start: 20141023
  26. PARACETAMOL [Concomitant]
     Active Substance: ACETAMINOPHEN
     Dosage: OLE?WEEK 192
     Dates: start: 20180704
  27. METHYLPREDNISOLONE. [Concomitant]
     Active Substance: METHYLPREDNISOLONE
     Indication: PREMEDICATION
     Dosage: BASELINE (WEEK 1)
     Dates: start: 20121113, end: 20121113
  28. METHYLPREDNISOLONE. [Concomitant]
     Active Substance: METHYLPREDNISOLONE
     Dosage: WEEK 48
     Dates: start: 20131015, end: 20131015
  29. METHYLPREDNISOLONE. [Concomitant]
     Active Substance: METHYLPREDNISOLONE
     Dosage: OLE?WEEK 120
     Dates: start: 20170127, end: 20170127
  30. METHYLPREDNISOLONE. [Concomitant]
     Active Substance: METHYLPREDNISOLONE
     Dosage: OLE?WEEK 168
     Dates: start: 20180120
  31. DIPHENHYDRAMINE. [Concomitant]
     Active Substance: DIPHENHYDRAMINE
     Indication: PREMEDICATION
     Dosage: BASELINE (WEEK 1)
     Dates: start: 20121113
  32. DIPHENHYDRAMINE. [Concomitant]
     Active Substance: DIPHENHYDRAMINE
     Dosage: WEEK 48
     Dates: start: 20131015
  33. DIPHENHYDRAMINE. [Concomitant]
     Active Substance: DIPHENHYDRAMINE
     Dosage: OLE?WEEK 0
     Dates: start: 20141009
  34. PARACETAMOL [Concomitant]
     Active Substance: ACETAMINOPHEN
     Dosage: OLE?WEEK 96
     Dates: start: 20160812
  35. PARACETAMOL [Concomitant]
     Active Substance: ACETAMINOPHEN
     Dosage: OLE?WEEK 168
     Dates: start: 20180120
  36. PARACETAMOL [Concomitant]
     Active Substance: ACETAMINOPHEN
     Dosage: OLE?WEEK 288
     Dates: start: 20200716
  37. METHYLPREDNISOLONE. [Concomitant]
     Active Substance: METHYLPREDNISOLONE
     Dosage: WEEK 2
     Dates: start: 20121127, end: 20121127
  38. DIPHENHYDRAMINE. [Concomitant]
     Active Substance: DIPHENHYDRAMINE
     Dosage: OLE?WEEK 96
     Dates: start: 20160812
  39. METHYLPREDNISOLONE. [Concomitant]
     Active Substance: METHYLPREDNISOLONE
     Dosage: OLE?WEEK 48
     Dates: start: 20150917, end: 20150917
  40. OCRELIZUMAB. [Suspect]
     Active Substance: OCRELIZUMAB
     Indication: RELAPSING-REMITTING MULTIPLE SCLEROSIS
     Dosage: WEEK 1?SUBSEQUENT DOSES RECEIVED ON: 27/NOV/2012 (WEEK: 2) (LOT NO:604740)
     Route: 042
     Dates: start: 20121113
  41. DIPHENHYDRAMINE. [Concomitant]
     Active Substance: DIPHENHYDRAMINE
     Dosage: OLE?WEEK 216
     Dates: start: 20181214, end: 20181214
  42. METHYLPREDNISOLONE. [Concomitant]
     Active Substance: METHYLPREDNISOLONE
     Dosage: OLE?WEEK 216
     Dates: start: 20181214, end: 20181214
  43. METHYLPREDNISOLONE. [Concomitant]
     Active Substance: METHYLPREDNISOLONE
     Dosage: OLE?WEEK 264
     Dates: start: 20191031, end: 20191031
  44. METHYLPREDNISOLONE. [Concomitant]
     Active Substance: METHYLPREDNISOLONE
     Dosage: OLE?WEEK 312
     Dates: start: 20201223, end: 20201223
  45. DIPHENHYDRAMINE. [Concomitant]
     Active Substance: DIPHENHYDRAMINE
     Dosage: OLE?WEEK 2
     Dates: start: 20141023
  46. DIPHENHYDRAMINE. [Concomitant]
     Active Substance: DIPHENHYDRAMINE
     Dosage: OLE?WEEK 48
     Dates: start: 20150917
  47. DIPHENHYDRAMINE. [Concomitant]
     Active Substance: DIPHENHYDRAMINE
     Dosage: OLE?WEEK 120
     Dates: start: 20170127
  48. PARACETAMOL [Concomitant]
     Active Substance: ACETAMINOPHEN
     Dosage: WEEK 2
     Dates: start: 20121127
  49. PARACETAMOL [Concomitant]
     Active Substance: ACETAMINOPHEN
     Dosage: OLE?WEEK 0
     Dates: start: 20141009
  50. PARACETAMOL [Concomitant]
     Active Substance: ACETAMINOPHEN
     Dosage: OLE?WEEK 144
     Dates: start: 20170714
  51. METHYLPREDNISOLONE. [Concomitant]
     Active Substance: METHYLPREDNISOLONE
     Dosage: OLE?WEEK 2
     Dates: start: 20141023, end: 20141023
  52. METHYLPREDNISOLONE. [Concomitant]
     Active Substance: METHYLPREDNISOLONE
     Dosage: OLE?WEEK 24
     Dates: start: 20150326, end: 20150326
  53. METHYLPREDNISOLONE. [Concomitant]
     Active Substance: METHYLPREDNISOLONE
     Dosage: OLE?WEEK 72
     Dates: start: 20160309, end: 20160309
  54. METHYLPREDNISOLONE. [Concomitant]
     Active Substance: METHYLPREDNISOLONE
     Dosage: OLE?WEEK 144
     Dates: start: 20170714, end: 20170714
  55. METHYLPREDNISOLONE. [Concomitant]
     Active Substance: METHYLPREDNISOLONE
     Dosage: OLE?WEEK 288
     Dates: start: 20200716, end: 20200716
  56. OCRELIZUMAB. [Suspect]
     Active Substance: OCRELIZUMAB
     Dosage: WEEK 24?SUBSEQUENT DOSE: 15/OCT/2013 (WEEK 48 AND LOT NO: 604769), 01/APR/2014 (WEEK 72 AND LOT NO:6
     Route: 042
     Dates: start: 20130430
  57. OCRELIZUMAB. [Suspect]
     Active Substance: OCRELIZUMAB
     Indication: RELAPSING-REMITTING MULTIPLE SCLEROSIS
     Dosage: OLE WEEK 0?SUBSEQUENT DOSE: 23/OCT/2014 (OLE WEEK 2, 260 ML, LOT NUMBER: 1128191)?AS 300 MG INFUSION
     Route: 042
     Dates: start: 20141009
  58. DIPHENHYDRAMINE. [Concomitant]
     Active Substance: DIPHENHYDRAMINE
     Dosage: WEEK 2
     Dates: start: 20121127
  59. DIPHENHYDRAMINE. [Concomitant]
     Active Substance: DIPHENHYDRAMINE
     Dosage: WEEK 24
     Dates: start: 20130430
  60. DIPHENHYDRAMINE. [Concomitant]
     Active Substance: DIPHENHYDRAMINE
     Dosage: WEEK 72
     Dates: start: 20140401
  61. DIPHENHYDRAMINE. [Concomitant]
     Active Substance: DIPHENHYDRAMINE
     Dosage: OLE?WEEK 240
     Dates: start: 20190524
  62. DIPHENHYDRAMINE. [Concomitant]
     Active Substance: DIPHENHYDRAMINE
     Dosage: OLE?WEEK 288
     Dates: start: 20200716
  63. PARACETAMOL [Concomitant]
     Active Substance: ACETAMINOPHEN
     Dosage: OLE?WEEK 240
     Dates: start: 20190524
  64. PARACETAMOL [Concomitant]
     Active Substance: ACETAMINOPHEN
     Dosage: OLE?WEEK 264
     Dates: start: 20191031
  65. METHYLPREDNISOLONE. [Concomitant]
     Active Substance: METHYLPREDNISOLONE
     Dosage: OLE?WEEK 96
     Dates: start: 20160812, end: 20160812
  66. METHYLPREDNISOLONE. [Concomitant]
     Active Substance: METHYLPREDNISOLONE
     Dosage: OLE?WEEK 240
     Dates: start: 20190524, end: 20190524

REACTIONS (1)
  - Breast neoplasm [Not Recovered/Not Resolved]

NARRATIVE: CASE EVENT DATE: 20210521
